FAERS Safety Report 10607181 (Version 1)
Quarter: 2014Q4

REPORT INFORMATION
  Report Type: Spontaneous
  Country: US (occurrence: None)
  Receive Date: 20141124
  Receipt Date: 20141124
  Transmission Date: 20150529
  Serious: No
  Sender: FDA-Public Use
  Company Number: None

PATIENT
  Age: 82 Year
  Sex: Male
  Weight: 78.6 kg

DRUGS (1)
  1. ZOLPIDEM [Suspect]
     Active Substance: ZOLPIDEM\ZOLPIDEM TARTRATE
     Dosage: 10 MG OTHER PO
     Route: 048
     Dates: end: 20140808

REACTIONS (4)
  - Confusional state [None]
  - Syncope [None]
  - Drug interaction [None]
  - Mental status changes [None]

NARRATIVE: CASE EVENT DATE: 20140808
